FAERS Safety Report 21650034 (Version 1)
Quarter: 2022Q4

REPORT INFORMATION
  Report Type: Spontaneous
  Country: US (occurrence: US)
  Receive Date: 20221128
  Receipt Date: 20221128
  Transmission Date: 20230113
  Serious: Yes (Hospitalization)
  Sender: FDA-Public Use
  Company Number: US-SA-SAC20221125000863

PATIENT
  Sex: Female

DRUGS (1)
  1. DUPIXENT [Suspect]
     Active Substance: DUPILUMAB
     Dosage: 300 MG OTHER
     Route: 058

REACTIONS (6)
  - Hospitalisation [Unknown]
  - Panic reaction [Unknown]
  - Disturbance in attention [Unknown]
  - Fear of injection [Unknown]
  - Drug ineffective [Unknown]
  - Intentional dose omission [Unknown]
